FAERS Safety Report 9280952 (Version 3)
Quarter: 2013Q3

REPORT INFORMATION
  Report Type: Report from Study
  Country: US (occurrence: US)
  Receive Date: 20130509
  Receipt Date: 20130703
  Transmission Date: 20140515
  Serious: Yes (Hospitalization, Other)
  Sender: FDA-Public Use
  Company Number: US-ABBOTT-13P-163-1084821-00

PATIENT
  Age: 74 Year
  Sex: Male
  Weight: 131.66 kg

DRUGS (3)
  1. ANDROGEL [Suspect]
     Indication: BLOOD TESTOSTERONE DECREASED
     Dosage: 6 PUMPS DAILY
     Dates: start: 2010
  2. UNKNOWN MEDICATION [Concomitant]
     Indication: HYPERTENSION
  3. UNKNOWN MEDICATION [Concomitant]
     Indication: ARTHRITIS

REACTIONS (6)
  - Staphylococcal infection [Unknown]
  - Arthropathy [Recovered/Resolved]
  - Osteoarthritis [Recovered/Resolved]
  - Coma [Recovered/Resolved]
  - Arthropathy [Recovered/Resolved]
  - Weight decreased [Not Recovered/Not Resolved]
